FAERS Safety Report 9321087 (Version 1)
Quarter: 2013Q2

REPORT INFORMATION
  Report Type: Spontaneous
  Country: US (occurrence: US)
  Receive Date: 20130531
  Receipt Date: 20130531
  Transmission Date: 20140414
  Serious: Yes (Hospitalization)
  Sender: FDA-Public Use
  Company Number: US-AMGEN-USASP2013038192

PATIENT
  Age: 46 Year
  Sex: Female

DRUGS (1)
  1. ENBREL [Suspect]
     Indication: RHEUMATOID ARTHRITIS
     Dosage: 50 MG, QWK
     Dates: start: 20110419

REACTIONS (10)
  - Abdominal pain [Recovered/Resolved]
  - Perforation bile duct [Recovered/Resolved]
  - Pancreatitis [Recovered/Resolved]
  - Hepatic cyst [Recovered/Resolved]
  - Localised intraabdominal fluid collection [Recovered/Resolved]
  - Gallbladder disorder [Recovered/Resolved]
  - Joint stiffness [Not Recovered/Not Resolved]
  - Musculoskeletal stiffness [Not Recovered/Not Resolved]
  - Myalgia [Not Recovered/Not Resolved]
  - Arthralgia [Not Recovered/Not Resolved]
